FAERS Safety Report 17055645 (Version 1)
Quarter: 2019Q4

REPORT INFORMATION
  Report Type: Spontaneous
  Country: US (occurrence: US)
  Receive Date: 20191120
  Receipt Date: 20191120
  Transmission Date: 20200122
  Serious: Yes (Other)
  Sender: FDA-Public Use
  Company Number: US-IMPRIMIS NJOF-2077069

PATIENT

DRUGS (1)
  1. PREDNISOLONE-MOXIFLOXACIN-NEPAFENAC SUSPENSION [Suspect]
     Active Substance: MOXIFLOXACIN\NEPAFENAC\PREDNISOLONE ACETATE

REACTIONS (1)
  - Visual impairment [Recovered/Resolved]
